FAERS Safety Report 6377453-5 (Version None)
Quarter: 2009Q3

REPORT INFORMATION
  Report Type: 
  Country: None (occurrence: None)
  Receive Date: 20090925
  Receipt Date: 20090917
  Transmission Date: 20100115
  Serious: Yes (Hospitalization, Other)
  Sender: FDA-Public Use
  Company Number: US-ELI_LILLY_AND_COMPANY-US200909004108

PATIENT
  Sex: Female

DRUGS (10)
  1. FORTEO [Suspect]
     Indication: OSTEOPOROSIS
     Dates: start: 20070101
  2. FORTEO [Suspect]
     Dates: start: 20070101
  3. NEURONTIN [Concomitant]
     Indication: TRIGEMINAL NEURALGIA
     Dosage: 600 MG, 4/D
  4. XANAX [Concomitant]
     Indication: ANXIETY
     Dosage: 0.5 MG, AS NEEDED
  5. AMBIEN [Concomitant]
     Indication: INSOMNIA
  6. PREVACID [Concomitant]
     Dosage: 30 MG, UNK
  7. ALBUTEROL [Concomitant]
     Indication: RESPIRATORY DISORDER
     Dosage: UNK, AS NEEDED
  8. DARVOCET [Concomitant]
     Indication: ARTHRALGIA
     Dosage: 100 MG, 4/D
  9. COREG [Concomitant]
     Indication: HYPERTENSION
     Dosage: 3.125 MG, 2/D
  10. OXYGEN [Concomitant]
     Dosage: UNK, EACH EVENING

REACTIONS (24)
  - ANXIETY [None]
  - AORTIC VALVE STENOSIS [None]
  - ARTHRALGIA [None]
  - ASTHENIA [None]
  - ASTHMA [None]
  - BLOOD PRESSURE DECREASED [None]
  - BLOOD PRESSURE INADEQUATELY CONTROLLED [None]
  - BLOOD PRESSURE INCREASED [None]
  - CARDIAC DISORDER [None]
  - CATHETERISATION CARDIAC [None]
  - CHONDROPATHY [None]
  - CREPITATIONS [None]
  - DEPRESSED MOOD [None]
  - DYSPNOEA [None]
  - FATIGUE [None]
  - FLUID RETENTION [None]
  - INSOMNIA [None]
  - MOBILITY DECREASED [None]
  - MUSCULOSKELETAL PAIN [None]
  - MUSCULOSKELETAL STIFFNESS [None]
  - NECK PAIN [None]
  - ORAL PAIN [None]
  - PULMONARY CONGESTION [None]
  - WEIGHT DECREASED [None]
